FAERS Safety Report 6051386-6 (Version None)
Quarter: 2009Q1

REPORT INFORMATION
  Report Type: 
  Country: None (occurrence: None)
  Receive Date: 20090126
  Receipt Date: 20081204
  Transmission Date: 20090719
  Serious: Yes (Other)
  Sender: FDA-Public Use
  Company Number: FR-AVENTIS-200910061FR

PATIENT
  Age: 85 Year
  Sex: Female

DRUGS (1)
  1. ANZEMET [Suspect]
     Indication: DRUG USE FOR UNKNOWN INDICATION

REACTIONS (3)
  - DYSKINESIA [None]
  - FACIAL NEURALGIA [None]
  - OSTEONECROSIS [None]
